FAERS Safety Report 15654808 (Version 2)
Quarter: 2018Q4

REPORT INFORMATION
  Report Type: Report from Study
  Country: DE (occurrence: DE)
  Receive Date: 20181126
  Receipt Date: 20181205
  Transmission Date: 20190205
  Serious: Yes (Other)
  Sender: FDA-Public Use
  Company Number: DE-ROCHE-2219008

PATIENT
  Age: 77 Year
  Sex: Male

DRUGS (2)
  1. TRASTUZUMAB. [Suspect]
     Active Substance: TRASTUZUMAB
     Indication: GASTRIC CANCER
     Route: 042
     Dates: start: 20160915, end: 20170125
  2. PERTUZUMAB. [Suspect]
     Active Substance: PERTUZUMAB
     Indication: GASTRIC CANCER
     Route: 042
     Dates: start: 20160915, end: 20170125

REACTIONS (1)
  - Hypokalaemia [Recovered/Resolved]

NARRATIVE: CASE EVENT DATE: 20170120
